FAERS Safety Report 4522213-0 (Version None)
Quarter: 2004Q4

REPORT INFORMATION
  Report Type: 
  Country: None (occurrence: None)
  Receive Date: 20041207
  Receipt Date: 20041122
  Transmission Date: 20050328
  Serious: Yes (Hospitalization, Other)
  Sender: FDA-Public Use
  Company Number: USA041182724

PATIENT
  Age: 73 Year
  Sex: Female
  Weight: 74 kg

DRUGS (1)
  1. HUMALOG [Suspect]
     Indication: DIABETES MELLITUS
     Dates: start: 20020101

REACTIONS (12)
  - ARTERIAL OCCLUSIVE DISEASE [None]
  - BLOOD GLUCOSE INCREASED [None]
  - CONFUSIONAL STATE [None]
  - DISORIENTATION [None]
  - DIZZINESS [None]
  - FEELING ABNORMAL [None]
  - HYPOACUSIS [None]
  - HYPOGLYCAEMIA [None]
  - MYOCARDIAL INFARCTION [None]
  - SCAR [None]
  - VISUAL DISTURBANCE [None]
  - WEIGHT INCREASED [None]
